FAERS Safety Report 13634820 (Version 1)
Quarter: 2017Q2

REPORT INFORMATION
  Report Type: Spontaneous
  Country: US (occurrence: US)
  Receive Date: 20170608
  Receipt Date: 20170608
  Transmission Date: 20170830
  Serious: Yes (Hospitalization)
  Sender: FDA-Public Use
  Company Number: None

PATIENT
  Age: 77 Year
  Sex: Male

DRUGS (13)
  1. WARFARIN [Concomitant]
     Active Substance: WARFARIN
  2. METFORMIN [Concomitant]
     Active Substance: METFORMIN HYDROCHLORIDE
  3. MOTRIN [Concomitant]
     Active Substance: IBUPROFEN
  4. NORVASC [Concomitant]
     Active Substance: AMLODIPINE BESYLATE
  5. ZOLOFT [Concomitant]
     Active Substance: SERTRALINE HYDROCHLORIDE
  6. ENBREL [Suspect]
     Active Substance: ETANERCEPT
     Indication: RHEUMATOID ARTHRITIS
     Dosage: ?          OTHER FREQUENCY:WEEKLY;?
     Route: 058
     Dates: start: 20110920
  7. ALENDRONATE [Concomitant]
     Active Substance: ALENDRONATE SODIUM
  8. ASPIRIN. [Concomitant]
     Active Substance: ASPIRIN
  9. VICODIN [Concomitant]
     Active Substance: ACETAMINOPHEN\HYDROCODONE BITARTRATE
  10. PREDNISONE. [Concomitant]
     Active Substance: PREDNISONE
  11. OMEPRAZOLE. [Concomitant]
     Active Substance: OMEPRAZOLE
  12. SIMVASTATIN. [Concomitant]
     Active Substance: SIMVASTATIN
  13. VITAMIN D [Concomitant]
     Active Substance: CHOLECALCIFEROL

REACTIONS (2)
  - International normalised ratio increased [None]
  - Epistaxis [None]

NARRATIVE: CASE EVENT DATE: 20170530
